FAERS Safety Report 5147643-8 (Version None)
Quarter: 2006Q4

REPORT INFORMATION
  Report Type: 
  Country: None (occurrence: None)
  Receive Date: 20061108
  Receipt Date: 20061108
  Transmission Date: 20070319
  Serious: Yes (Hospitalization)
  Sender: FDA-Public Use
  Company Number: None

PATIENT
  Age: 55 Year
  Sex: Male
  Weight: 55.7924 kg

DRUGS (13)
  1. ENOXAPARIN SODIUM [Suspect]
     Indication: DEEP VEIN THROMBOSIS
     Dosage: 30 MG   DAILY   SQ
     Route: 058
     Dates: start: 20061017, end: 20061029
  2. NAFCILLIN      2 GM [Suspect]
     Indication: ABSCESS LIMB
     Dosage: 2 GM   Q6H    IV
     Route: 042
     Dates: start: 20061020, end: 20061101
  3. BUPROPION HCL [Concomitant]
  4. EPOGEN [Concomitant]
  5. CLINDAMYCIN [Concomitant]
  6. FERROUS SULFATE TAB [Concomitant]
  7. FOLIC ACID [Concomitant]
  8. LORAZEPAM [Concomitant]
  9. NOVOLIN R [Concomitant]
  10. NOVOLIN 70/30 [Concomitant]
  11. MORPHINE [Concomitant]
  12. OMEPRAZOLE [Concomitant]
  13. SERTRALINE [Concomitant]

REACTIONS (2)
  - HEPARIN-INDUCED THROMBOCYTOPENIA [None]
  - THROMBOCYTOPENIA [None]
